FAERS Safety Report 12470545 (Version 1)
Quarter: 2016Q2

REPORT INFORMATION
  Report Type: Spontaneous
  Country: JP (occurrence: JP)
  Receive Date: 20160616
  Receipt Date: 20160616
  Transmission Date: 20160815
  Serious: Yes (Other)
  Sender: FDA-Public Use
  Company Number: JP-ACCORD-041446

PATIENT
  Age: 73 Year
  Sex: Male

DRUGS (3)
  1. METHYLPREDNISOLONE. [Concomitant]
     Active Substance: METHYLPREDNISOLONE
     Indication: GLOMERULONEPHRITIS MINIMAL LESION
  2. GEMCITABINE/GEMCITABINE HYDROCHLORIDE [Suspect]
     Active Substance: GEMCITABINE\GEMCITABINE HYDROCHLORIDE
     Indication: PLEURAL MESOTHELIOMA MALIGNANT
  3. PREDNISOLONE. [Concomitant]
     Active Substance: PREDNISOLONE
     Indication: GLOMERULONEPHRITIS MINIMAL LESION
     Route: 048

REACTIONS (1)
  - Pancytopenia [Unknown]
